FAERS Safety Report 16252808 (Version 1)
Quarter: 2019Q2

REPORT INFORMATION
  Report Type: Spontaneous
  Country: US (occurrence: US)
  Receive Date: 20190326
  Receipt Date: 20190326
  Transmission Date: 20190711
  Serious: No
  Sender: FDA-Public Use
  Company Number: None

PATIENT
  Age: 78 Year
  Sex: Female
  Weight: 45.36 kg

DRUGS (18)
  1. FISH OIL [Concomitant]
     Active Substance: FISH OIL
  2. ALENDRONATE [Concomitant]
     Active Substance: ALENDRONATE SODIUM
  3. TRIAMTERENE AND HYDROCHLOROTHIAZIDE [Concomitant]
     Active Substance: HYDROCHLOROTHIAZIDE\TRIAMTERENE
  4. CALTRATE [Concomitant]
     Active Substance: CALCIUM CARBONATE
  5. ERYTHROMYCIN OINTMENT [Concomitant]
     Active Substance: ERYTHROMYCIN
  6. POTASSIUM [Concomitant]
     Active Substance: POTASSIUM
  7. VENTOLIN HFA [Concomitant]
     Active Substance: ALBUTEROL SULFATE
  8. SULFAMETHOXAZOLE AND TRIMETHOPRIM [Suspect]
     Active Substance: SULFAMETHOXAZOLE\TRIMETHOPRIM
     Indication: CYSTITIS
     Dosage: ?          QUANTITY:800-160MG, 2 PILLS;?
     Route: 048
     Dates: start: 20190303, end: 20190311
  9. ATORVASTATIN [Concomitant]
     Active Substance: ATORVASTATIN
  10. BUPROPION. [Concomitant]
     Active Substance: BUPROPION
  11. RESTASIS [Concomitant]
     Active Substance: CYCLOSPORINE
  12. SINGULAIR [Concomitant]
     Active Substance: MONTELUKAST SODIUM
  13. CENTRUM SILVER [Concomitant]
     Active Substance: MINERALS\VITAMINS
  14. AZELASTINE. [Concomitant]
     Active Substance: AZELASTINE HYDROCHLORIDE
  15. FLONASE [Concomitant]
     Active Substance: FLUTICASONE PROPIONATE
  16. METOPROLOL. [Concomitant]
     Active Substance: METOPROLOL
  17. PULMICORT TURBUHALER [Concomitant]
     Active Substance: BUDESONIDE
  18. TRIAMCINOLONE CREAM [Concomitant]
     Active Substance: TRIAMCINOLONE

REACTIONS (8)
  - Nausea [None]
  - Hallucination [None]
  - Abdominal pain upper [None]
  - Platelet count decreased [None]
  - Diarrhoea [None]
  - Dizziness [None]
  - Vomiting [None]
  - Insomnia [None]

NARRATIVE: CASE EVENT DATE: 20190310
